FAERS Safety Report 8887043 (Version 1)
Quarter: 2012Q4

REPORT INFORMATION
  Report Type: 
  Country: AT (occurrence: DE)
  Receive Date: 20121105
  Receipt Date: 20121105
  Transmission Date: 20130627
  Serious: Yes (Other)
  Sender: FDA-Public Use
  Company Number: DE-BRISTOL-MYERS SQUIBB COMPANY-17057498

PATIENT
  Age: 37 Year
  Sex: Male
  Weight: 76 kg

DRUGS (8)
  1. ATAZANAVIR [Suspect]
     Indication: HIV INFECTION
  2. RITONAVIR [Suspect]
     Indication: HIV INFECTION
  3. TENOFOVIR DISOPROXIL FUMARATE [Suspect]
     Indication: HIV INFECTION
  4. EMTRICITABINE [Suspect]
     Indication: HIV INFECTION
  5. TELAPREVIR [Suspect]
     Indication: HEPATITIS C
  6. RIBAVIRIN [Suspect]
     Indication: HEPATITIS C
  7. SILDENAFIL [Concomitant]
  8. ATORVASTATIN [Concomitant]

REACTIONS (4)
  - Haemoglobin decreased [Unknown]
  - Blood bilirubin increased [Unknown]
  - Depression [Unknown]
  - Mood altered [Unknown]
